FAERS Safety Report 5984616-7 (Version None)
Quarter: 2008Q4

REPORT INFORMATION
  Report Type: 
  Country: None (occurrence: None)
  Receive Date: 20081202
  Receipt Date: 20081118
  Transmission Date: 20090506
  Serious: No
  Sender: FDA-Public Use
  Company Number: 2008-186993-NL

PATIENT
  Age: 31 Year
  Sex: Female

DRUGS (1)
  1. CHORIONIC GONADOTROPIN [Suspect]
     Indication: OVARIAN FAILURE
     Dosage: DF

REACTIONS (3)
  - CAESAREAN SECTION [None]
  - ECTOPIC PREGNANCY [None]
  - TWIN PREGNANCY [None]
